FAERS Safety Report 17603141 (Version 1)
Quarter: 2020Q1

REPORT INFORMATION
  Report Type: Spontaneous
  Country: US (occurrence: US)
  Receive Date: 20200331
  Receipt Date: 20200331
  Transmission Date: 20200409
  Serious: No
  Sender: FDA-Public Use
  Company Number: US-AMGEN-USASP2020050916

PATIENT
  Sex: Female

DRUGS (1)
  1. REPATHA [Suspect]
     Active Substance: EVOLOCUMAB
     Indication: BLOOD CHOLESTEROL INCREASED
     Dosage: 140 MILLIGRAM
     Route: 065

REACTIONS (5)
  - Hunger [Recovered/Resolved]
  - Hyperhidrosis [Recovered/Resolved]
  - Chest pain [Recovered/Resolved]
  - Pruritus [Recovered/Resolved]
  - Restlessness [Recovered/Resolved]
